FAERS Safety Report 24463070 (Version 1)
Quarter: 2024Q4

REPORT INFORMATION
  Report Type: Report from Study
  Country: US (occurrence: US)
  Receive Date: 20241018
  Receipt Date: 20241018
  Transmission Date: 20250115
  Serious: No
  Sender: ROCHE
  Company Number: US-ROCHE-2828238

PATIENT
  Age: 34 Year
  Sex: Male

DRUGS (3)
  1. XOLAIR [Suspect]
     Active Substance: OMALIZUMAB
     Indication: Idiopathic urticaria
     Dosage: INJECT 300 MG SUBCUTANEOUSLY EVERY 4 AND 6 WEEK(S)? FREQUENCY TEXT:EVERY 4 AND 6 WEEK(S)
     Route: 058
  2. XOLAIR [Suspect]
     Active Substance: OMALIZUMAB
     Indication: Urticaria
     Dosage: 300MG EVERY 6 WEEKS
     Route: 058
     Dates: start: 20240108
  3. XOLAIR [Suspect]
     Active Substance: OMALIZUMAB
     Indication: Chronic spontaneous urticaria

REACTIONS (2)
  - Off label use [Unknown]
  - No adverse event [Unknown]
